FAERS Safety Report 11124668 (Version 1)
Quarter: 2015Q2

REPORT INFORMATION
  Report Type: Spontaneous
  Country: PL (occurrence: PL)
  Receive Date: 20150520
  Receipt Date: 20150520
  Transmission Date: 20150821
  Serious: Yes (Death, Other)
  Sender: FDA-Public Use
  Company Number: PL-SUN PHARMACEUTICAL INDUSTRIES LTD-2015RR-97427

PATIENT
  Age: 80 Year
  Sex: Male

DRUGS (3)
  1. CEROXIM TABLETS [Suspect]
     Active Substance: CEFUROXIME AXETIL
     Indication: RESPIRATORY TRACT INFECTION
  2. CEROXIM TABLETS [Suspect]
     Active Substance: CEFUROXIME AXETIL
     Indication: COUGH
     Dosage: 2 TABLETS OF 500 MG, EXPIRED FROM 6 MONTHS
     Route: 048
  3. CEROXIM TABLETS [Suspect]
     Active Substance: CEFUROXIME AXETIL
     Indication: COUGH
     Dosage: 500 MG, BID
     Route: 048

REACTIONS (5)
  - Cough [Unknown]
  - Intentional product misuse [Recovered/Resolved]
  - Sudden death [Fatal]
  - Expired product administered [Recovered/Resolved]
  - Fall [Unknown]
